FAERS Safety Report 11927090 (Version 4)
Quarter: 2016Q1

REPORT INFORMATION
  Report Type: Report from Study
  Country: US (occurrence: US)
  Receive Date: 20160119
  Receipt Date: 20160217
  Transmission Date: 20160526
  Serious: Yes (Death, Hospitalization, Other)
  Sender: FDA-Public Use
  Company Number: US-JNJFOC-20160109123

PATIENT
  Age: 81 Year
  Sex: Male
  Weight: 58 kg

DRUGS (8)
  1. HYDREA [Concomitant]
     Active Substance: HYDROXYUREA
     Dates: start: 2010
  2. PREDNISONE. [Concomitant]
     Active Substance: PREDNISONE
  3. IMBRUVICA [Suspect]
     Active Substance: IBRUTINIB
     Indication: THERAPY NAIVE
     Route: 048
  4. ASPIRIN. [Concomitant]
     Active Substance: ASPIRIN
  5. IMBRUVICA [Suspect]
     Active Substance: IBRUTINIB
     Indication: THERAPY NAIVE
     Route: 048
     Dates: start: 20151106
  6. GLYBURIDE. [Concomitant]
     Active Substance: GLYBURIDE
  7. IMBRUVICA [Suspect]
     Active Substance: IBRUTINIB
     Indication: WALDENSTROM^S MACROGLOBULINAEMIA
     Route: 048
     Dates: start: 20151106
  8. IMBRUVICA [Suspect]
     Active Substance: IBRUTINIB
     Indication: WALDENSTROM^S MACROGLOBULINAEMIA
     Route: 048

REACTIONS (14)
  - Pain in extremity [Unknown]
  - Chest discomfort [Unknown]
  - Blood bilirubin increased [Not Recovered/Not Resolved]
  - Respiratory failure [Unknown]
  - Dysphagia [Unknown]
  - Constipation [Unknown]
  - Pneumonia cytomegaloviral [Not Recovered/Not Resolved]
  - Limb discomfort [Unknown]
  - Hypotension [Not Recovered/Not Resolved]
  - Off label use [Unknown]
  - Pulmonary hypertension [Not Recovered/Not Resolved]
  - Shunt blood flow excessive [Not Recovered/Not Resolved]
  - Disease progression [Fatal]
  - Pneumonia fungal [Not Recovered/Not Resolved]

NARRATIVE: CASE EVENT DATE: 20151106
